FAERS Safety Report 9174023 (Version 1)
Quarter: 2013Q1

REPORT INFORMATION
  Report Type: Spontaneous
  Country: US (occurrence: US)
  Receive Date: 20130320
  Receipt Date: 20130320
  Transmission Date: 20140127
  Serious: No
  Sender: FDA-Public Use
  Company Number: US-PFIZER INC-2013086641

PATIENT
  Sex: Male

DRUGS (4)
  1. LATANOPROST [Suspect]
     Indication: GLAUCOMA
     Dosage: 1 DROP EACH EYE ONCE DAILY
     Route: 047
     Dates: start: 200503
  2. EXELON [Concomitant]
     Dosage: UNK
  3. SINEMET [Concomitant]
     Dosage: UNK
  4. DIGOXIN [Concomitant]
     Dosage: UNK

REACTIONS (2)
  - Foreign body sensation in eyes [Unknown]
  - Product quality issue [Unknown]
